FAERS Safety Report 5693687-7 (Version None)
Quarter: 2008Q2

REPORT INFORMATION
  Report Type: 
  Country: None (occurrence: None)
  Receive Date: 20080403
  Receipt Date: 20080331
  Transmission Date: 20081010
  Serious: Yes (Other)
  Sender: FDA-Public Use
  Company Number: US-ASTRAZENECA-2008UW02425

PATIENT
  Age: 16442 Day
  Sex: Male
  Weight: 111.4 kg

DRUGS (7)
  1. SEROQUEL [Suspect]
     Indication: BIPOLAR DISORDER
     Dosage: VARIOUS (INCLUDING BUT NOT LIMITED TO 200MG; 300MG)
     Route: 048
     Dates: start: 20021001, end: 20070601
  2. GEODON [Concomitant]
     Dates: start: 20030101, end: 20060101
  3. HALDOL SOLUTAB [Concomitant]
  4. RISPERDAL [Concomitant]
     Dates: start: 20030101
  5. RISPERDAL [Concomitant]
     Dates: start: 20040101
  6. THORAZINE [Concomitant]
     Dosage: TOOK ONE TIME
  7. ZYPREXA/SYMBYAX (OLANZAPINE) [Concomitant]
     Dates: start: 20071201

REACTIONS (4)
  - BLOOD CHOLESTEROL INCREASED [None]
  - DIABETES MELLITUS [None]
  - OVERDOSE [None]
  - SURGERY [None]
